FAERS Safety Report 13664075 (Version 2)
Quarter: 2017Q3

REPORT INFORMATION
  Report Type: Spontaneous
  Country: KR (occurrence: KR)
  Receive Date: 20170619
  Receipt Date: 20170825
  Transmission Date: 20171127
  Serious: No
  Sender: FDA-Public Use
  Company Number: KR-009507513-1610KOR009179

PATIENT
  Age: 43 Year
  Sex: Male
  Weight: 61.7 kg

DRUGS (13)
  1. CISPLAN [Concomitant]
     Active Substance: CISPLATIN
     Indication: HEPATOCELLULAR CARCINOMA
     Dosage: STRENGTH: 10MG/20 ML, 20 MG, ONCE, CYCLE 3, ROUTE: TRANSARTERIAL
     Dates: start: 20150610, end: 20150610
  2. ALOXI [Concomitant]
     Active Substance: PALONOSETRON HYDROCHLORIDE
     Indication: PREMEDICATION
     Dosage: 0.25 MG, ONCE
     Route: 042
     Dates: start: 20150610, end: 20150610
  3. NEXIUM [Concomitant]
     Active Substance: ESOMEPRAZOLE MAGNESIUM
     Indication: PROPHYLAXIS
     Dosage: 20 MG, QD
     Route: 048
     Dates: start: 20150423
  4. EMEND (FOSAPREPITANT DIMEGLUMINE) [Suspect]
     Active Substance: FOSAPREPITANT DIMEGLUMINE
     Indication: PROPHYLAXIS OF NAUSEA AND VOMITING
     Dosage: 150 MG, ONCE
     Route: 042
     Dates: start: 20150610, end: 20150610
  5. DEXTROSE (+) POTASSIUM CHLORIDE (+) SODIUM CHLORIDE [Concomitant]
     Indication: FLUID REPLACEMENT
     Dosage: 1000 ML, ONCE
     Route: 042
     Dates: start: 20150610, end: 20150610
  6. NEXIUM I.V. [Concomitant]
     Active Substance: ESOMEPRAZOLE SODIUM
     Indication: PREMEDICATION
     Dosage: 40 MG, ONCE
     Route: 042
     Dates: start: 20150610, end: 20150610
  7. URSA TABLETS [Concomitant]
     Indication: PROPHYLAXIS
     Dosage: 200 MG, BID
     Route: 048
     Dates: start: 20150423
  8. ILDONG ARONAMIN C PLUS [Concomitant]
     Indication: VITAMIN SUPPLEMENTATION
     Dosage: 1 TABLET, QD
     Route: 048
     Dates: start: 20150423
  9. VIREAD [Concomitant]
     Active Substance: TENOFOVIR DISOPROXIL FUMARATE
     Indication: HEPATITIS
     Dosage: 1 TABLET, QD
     Route: 048
     Dates: start: 20150423
  10. CISPLAN [Concomitant]
     Active Substance: CISPLATIN
     Indication: HEPATOCELLULAR CARCINOMA
     Dosage: STRENGTH: 50MG/100 ML, 100 MG, ONCE, CYCLE 3, ROUTE: TRANSARTERIAL
     Dates: start: 20150610, end: 20150610
  11. DEXAMETHASONE SODIUM PHOSPHATE. [Concomitant]
     Active Substance: DEXAMETHASONE SODIUM PHOSPHATE
     Indication: PREMEDICATION
     Dosage: STRENGTH: 5MG/ML, 5 MG, ONCE
     Route: 042
     Dates: start: 20150610, end: 20150610
  12. DEXTROSE. [Concomitant]
     Active Substance: DEXTROSE
     Indication: FLUID REPLACEMENT
     Dosage: 1000 ML, BID
     Route: 042
     Dates: start: 20150610, end: 20150610
  13. MEPERIDINE HYDROCHLORIDE. [Concomitant]
     Active Substance: MEPERIDINE HYDROCHLORIDE
     Indication: PREMEDICATION
     Dosage: 50 MG, ONCE, STRENGHT: 50MG/ML
     Route: 030
     Dates: start: 20150610, end: 20150610

REACTIONS (1)
  - Nausea [Recovered/Resolved]

NARRATIVE: CASE EVENT DATE: 20150610
